FAERS Safety Report 13234810 (Version 1)
Quarter: 2017Q1

REPORT INFORMATION
  Report Type: Spontaneous
  Country: US (occurrence: US)
  Receive Date: 20170215
  Receipt Date: 20170215
  Transmission Date: 20170428
  Serious: No
  Sender: FDA-Public Use
  Company Number: None

PATIENT
  Age: 89 Year
  Sex: Male

DRUGS (1)
  1. 5% SODIUM CHLORIDE USP SOLUTUION [Suspect]
     Active Substance: SODIUM CHLORIDE
     Indication: FUCHS^ SYNDROME
     Dosage: OTHER STRENGTH:PERCENT;QUANTITY:1 DROP(S);OTHER FREQUENCY:EACH EYE 3-4X DAY;?
     Route: 047

REACTIONS (4)
  - Instillation site pain [None]
  - Product taste abnormal [None]
  - Product quality issue [None]
  - Product selection error [None]

NARRATIVE: CASE EVENT DATE: 20170214
